FAERS Safety Report 19082839 (Version 1)
Quarter: 2021Q2

REPORT INFORMATION
  Report Type: Spontaneous
  Country: US (occurrence: US)
  Receive Date: 20210401
  Receipt Date: 20210401
  Transmission Date: 20210717
  Serious: Yes (Hospitalization, Disabling)
  Sender: FDA-Public Use
  Company Number: US-LA JOLLA PHARMACEUTICAL-2021TP000004

PATIENT
  Age: 64 Year
  Sex: Male
  Weight: 84 kg

DRUGS (2)
  1. XERAVA [Suspect]
     Active Substance: ERAVACYCLINE DIHYDROCHLORIDE
     Indication: ABSCESS
     Route: 042
     Dates: start: 20210202, end: 20210219
  2. XERAVA [Suspect]
     Active Substance: ERAVACYCLINE DIHYDROCHLORIDE
     Indication: PSOAS ABSCESS

REACTIONS (1)
  - Blood alkaline phosphatase increased [Recovered/Resolved with Sequelae]

NARRATIVE: CASE EVENT DATE: 20210216
